FAERS Safety Report 15222563 (Version 1)
Quarter: 2018Q3

REPORT INFORMATION
  Report Type: Spontaneous
  Country: AU (occurrence: AU)
  Receive Date: 20180731
  Receipt Date: 20180731
  Transmission Date: 20181010
  Serious: Yes (Hospitalization)
  Sender: FDA-Public Use
  Company Number: AU-BAXTER-2018BAX020410

PATIENT
  Age: 64 Year
  Sex: Female

DRUGS (2)
  1. DOXORUBICIN [Concomitant]
     Active Substance: DOXORUBICIN
     Indication: INVASIVE DUCTAL BREAST CARCINOMA
     Dosage: FIRST CYCLE OF ADJUVANT CHEMOTHERAPY
     Route: 065
  2. ENDOXAN CYCLOPHOSPHAMIDE 2G (AS MONOHYDRATE) POWDER FOR INJECTION VIAL [Suspect]
     Active Substance: CYCLOPHOSPHAMIDE
     Indication: INVASIVE DUCTAL BREAST CARCINOMA
     Dosage: FIRST CYCLE OF ADJUVANT CHEMOTHERAPY
     Route: 042

REACTIONS (1)
  - Hyponatraemic encephalopathy [Recovered/Resolved]
